FAERS Safety Report 12670434 (Version 3)
Quarter: 2016Q4

REPORT INFORMATION
  Report Type: Spontaneous
  Country: US (occurrence: US)
  Receive Date: 20160822
  Receipt Date: 20161018
  Transmission Date: 20170207
  Serious: Yes (Other)
  Sender: FDA-Public Use
  Company Number: US-GLAXOSMITHKLINE-US2016119743

PATIENT
  Age: 63 Year
  Sex: Male

DRUGS (1)
  1. TRANSDERM SCOP [Suspect]
     Active Substance: SCOPOLAMINE
     Indication: SECRETION DISCHARGE
     Dosage: UNK

REACTIONS (5)
  - Overdose [Unknown]
  - Nonspecific reaction [Unknown]
  - Off label use [Unknown]
  - Product quality issue [Unknown]
  - Delirium [Unknown]
